FAERS Safety Report 9450014 (Version 3)
Quarter: 2013Q3

REPORT INFORMATION
  Report Type: Spontaneous
  Country: AR (occurrence: AR)
  Receive Date: 20130809
  Receipt Date: 20130920
  Transmission Date: 20140515
  Serious: Yes (Death, Hospitalization)
  Sender: FDA-Public Use
  Company Number: AR-PFIZER INC-2013228970

PATIENT
  Age: 75 Year
  Sex: Male

DRUGS (1)
  1. SUTENT [Suspect]
     Indication: METASTATIC RENAL CELL CARCINOMA
     Dosage: 50 MG, 4 WEEKS ON AND 2 WEEKS OFF
     Route: 048
     Dates: start: 20130716

REACTIONS (8)
  - Disease progression [Fatal]
  - Metastatic renal cell carcinoma [Fatal]
  - Swelling face [Recovering/Resolving]
  - Diarrhoea [Recovering/Resolving]
  - Oral mucosal blistering [Recovering/Resolving]
  - Local swelling [Recovering/Resolving]
  - Dehydration [Not Recovered/Not Resolved]
  - Blood pressure fluctuation [Recovered/Resolved]
